FAERS Safety Report 6056263-2 (Version None)
Quarter: 2009Q1

REPORT INFORMATION
  Report Type: 
  Country: None (occurrence: None)
  Receive Date: 20090126
  Receipt Date: 20090126
  Transmission Date: 20090719
  Serious: Yes (Hospitalization)
  Sender: FDA-Public Use
  Company Number: None

PATIENT
  Age: 50 Year
  Sex: Female
  Weight: 72 kg

DRUGS (1)
  1. BUPROPION [Suspect]
     Dosage: 150 MG PO
     Route: 048
     Dates: start: 20090113, end: 20090121

REACTIONS (1)
  - CONVULSION [None]
